FAERS Safety Report 6243439-4 (Version None)
Quarter: 2009Q2

REPORT INFORMATION
  Report Type: 
  Country: None (occurrence: None)
  Receive Date: 20090624
  Receipt Date: 20090612
  Transmission Date: 20091009
  Serious: No
  Sender: FDA-Public Use
  Company Number: SE-ELI_LILLY_AND_COMPANY-SE200906003028

PATIENT
  Age: 45 Year
  Sex: Male

DRUGS (4)
  1. CYMBALTA [Suspect]
     Indication: DEPRESSION
     Dosage: 120 MG, UNKNOWN
     Route: 065
     Dates: start: 20090416
  2. CYMBALTA [Suspect]
     Dosage: 90 MG, UNKNOWN
     Route: 065
     Dates: start: 20080916
  3. CYMBALTA [Suspect]
     Dosage: 60 MG, UNKNOWN
     Route: 065
     Dates: start: 20080804
  4. MIRTAZAPINE [Concomitant]
     Dosage: 30 MG, UNKNOWN
     Route: 065
     Dates: start: 20080501

REACTIONS (3)
  - ALANINE AMINOTRANSFERASE INCREASED [None]
  - ASPARTATE AMINOTRANSFERASE INCREASED [None]
  - GAMMA-GLUTAMYLTRANSFERASE INCREASED [None]
